FAERS Safety Report 5246161-6 (Version None)
Quarter: 2007Q1

REPORT INFORMATION
  Report Type: 
  Country: None (occurrence: None)
  Receive Date: 20070220
  Receipt Date: 20070208
  Transmission Date: 20070707
  Serious: Yes (Hospitalization)
  Sender: FDA-Public Use
  Company Number: H3810-00620-SPO-JP

PATIENT
  Age: 58 Year
  Sex: Male

DRUGS (4)
  1. RABEPRAZOLE SODIUM [Suspect]
     Indication: GASTRIC ULCER
     Dosage: 10 MG, 1 IN 1 D, ORAL
     Route: 048
     Dates: start: 20061225
  2. MUCOSTA (REBAMIPIDE) [Concomitant]
  3. AZUCURENIN (MARZULENE S) [Concomitant]
  4. FAMOTIDINE [Concomitant]

REACTIONS (2)
  - HEPATITIS FULMINANT [None]
  - SWELLING FACE [None]
